FAERS Safety Report 9330576 (Version 1)
Quarter: 2013Q2

REPORT INFORMATION
  Report Type: Spontaneous
  Country: US (occurrence: US)
  Receive Date: 20130605
  Receipt Date: 20130605
  Transmission Date: 20140414
  Serious: Yes (Death)
  Sender: FDA-Public Use
  Company Number: PHEH2013US012138

PATIENT
  Age: 56 Year
  Sex: Male

DRUGS (1)
  1. MYFORTIC [Suspect]
     Route: 048

REACTIONS (1)
  - Death [Fatal]
